FAERS Safety Report 11077324 (Version 1)
Quarter: 2015Q2

REPORT INFORMATION
  Report Type: Spontaneous
  Country: BR (occurrence: BR)
  Receive Date: 20150429
  Receipt Date: 20150429
  Transmission Date: 20150821
  Serious: Yes (Other)
  Sender: FDA-Public Use
  Company Number: BR-ROCHE-1570131

PATIENT
  Age: 92 Year
  Sex: Female
  Weight: 70 kg

DRUGS (3)
  1. SILYMARIN [Concomitant]
     Active Substance: MILK THISTLE
     Indication: GASTRIC DISORDER
     Dosage: 1 TABLET
     Route: 065
  2. RIVOTRIL [Suspect]
     Active Substance: CLONAZEPAM
     Indication: TINNITUS
     Route: 060
     Dates: start: 20150424
  3. RIVOTRIL [Suspect]
     Active Substance: CLONAZEPAM
     Route: 060
     Dates: start: 2014

REACTIONS (2)
  - Drug administration error [Unknown]
  - Dementia [Unknown]

NARRATIVE: CASE EVENT DATE: 20150424
